FAERS Safety Report 6990027-8 (Version None)
Quarter: 2010Q3

REPORT INFORMATION
  Report Type: 
  Country: None (occurrence: None)
  Receive Date: 20100916
  Receipt Date: 20100329
  Transmission Date: 20110219
  Serious: Yes (Other)
  Sender: FDA-Public Use
  Company Number: US-PFIZER INC-2010040994

PATIENT
  Sex: Female
  Weight: 46.259 kg

DRUGS (4)
  1. LYRICA [Suspect]
     Indication: FIBROMYALGIA
     Dosage: 50 MG, 2X/DAY
     Dates: start: 20080101
  2. ATENOLOL [Concomitant]
     Indication: BLOOD PRESSURE INCREASED
     Dosage: UNK
  3. LISINOPRIL [Concomitant]
     Indication: BLOOD PRESSURE INCREASED
     Dosage: UNK
  4. EVISTA [Concomitant]
     Dosage: UNK

REACTIONS (3)
  - BODY HEIGHT DECREASED [None]
  - HAEMORRHAGE SUBCUTANEOUS [None]
  - ROTATOR CUFF SYNDROME [None]
